FAERS Safety Report 11636049 (Version 1)
Quarter: 2015Q4

REPORT INFORMATION
  Report Type: Spontaneous
  Country: US (occurrence: None)
  Receive Date: 20151015
  Receipt Date: 20151015
  Transmission Date: 20160304
  Serious: No
  Sender: FDA-Public Use
  Company Number: None

PATIENT
  Age: 69 Year
  Sex: Male
  Weight: 84.96 kg

DRUGS (4)
  1. TAXOL [Suspect]
     Active Substance: PACLITAXEL
     Dates: end: 20140915
  2. 5-FLUOROURACIL (5-FU) [Suspect]
     Active Substance: FLUOROURACIL
     Dates: end: 20141118
  3. CARBOPLATIN. [Suspect]
     Active Substance: CARBOPLATIN
     Dates: end: 20140913
  4. ELOXATIN [Suspect]
     Active Substance: OXALIPLATIN
     Dates: end: 20141106

REACTIONS (4)
  - Device dislocation [None]
  - No therapeutic response [None]
  - Anastomotic stenosis [None]
  - Dysphagia [None]

NARRATIVE: CASE EVENT DATE: 20150824
